FAERS Safety Report 7687454-2 (Version None)
Quarter: 2011Q3

REPORT INFORMATION
  Report Type: 
  Country: None (occurrence: None)
  Receive Date: 20110816
  Receipt Date: 20110803
  Transmission Date: 20111222
  Serious: Yes (Hospitalization)
  Sender: FDA-Public Use
  Company Number: DE-GENENTECH-322784

PATIENT
  Sex: Male

DRUGS (1)
  1. LUCENTIS [Suspect]
     Indication: MACULAR DEGENERATION
     Route: 031

REACTIONS (4)
  - RASH GENERALISED [None]
  - BRONCHIAL OBSTRUCTION [None]
  - BLOOD IMMUNOGLOBULIN E INCREASED [None]
  - LYMPHADENOPATHY [None]
